FAERS Safety Report 11788699 (Version 1)
Quarter: 2015Q4

REPORT INFORMATION
  Report Type: Spontaneous
  Country: US (occurrence: None)
  Receive Date: 20151130
  Receipt Date: 20151130
  Transmission Date: 20160305
  Serious: No
  Sender: FDA-Public Use
  Company Number: None

PATIENT
  Age: 86 Year
  Sex: Male
  Weight: 150 kg

DRUGS (5)
  1. SIMVASTATIN. [Concomitant]
     Active Substance: SIMVASTATIN
  2. ALLOPURINOL. [Concomitant]
     Active Substance: ALLOPURINOL
  3. LISINOPRIL 40MG LUPIN 90 TABS. WALGREEN (WHP) WHI [Suspect]
     Active Substance: LISINOPRIL
     Indication: HYPERTENSION
     Route: 048
     Dates: start: 20151006, end: 20151110
  4. DELSYM [Concomitant]
     Active Substance: DEXTROMETHORPHAN
  5. ASPIRIN. [Concomitant]
     Active Substance: ASPIRIN

REACTIONS (4)
  - Cough [None]
  - Rhinorrhoea [None]
  - Lacrimation increased [None]
  - No therapeutic response [None]

NARRATIVE: CASE EVENT DATE: 20151006
